FAERS Safety Report 9723739 (Version 2)
Quarter: 2014Q1

REPORT INFORMATION
  Report Type: Spontaneous
  Country: US (occurrence: US)
  Receive Date: 20131202
  Receipt Date: 20140207
  Transmission Date: 20141002
  Serious: Yes (Death, Hospitalization)
  Sender: FDA-Public Use
  Company Number: US-PFIZER INC-2013338890

PATIENT
  Age: 56 Year
  Sex: Female

DRUGS (2)
  1. XALKORI [Suspect]
     Indication: BRAIN NEOPLASM MALIGNANT
     Dosage: 250 MG, 2X/DAY
     Route: 048
     Dates: start: 20130910
  2. XALKORI [Suspect]

REACTIONS (4)
  - Death [Fatal]
  - Malaise [Unknown]
  - Pneumonia [Unknown]
  - Off label use [Unknown]
